FAERS Safety Report 5006476-3 (Version None)
Quarter: 2006Q2

REPORT INFORMATION
  Report Type: 
  Country: None (occurrence: None)
  Receive Date: 20060519
  Receipt Date: 20060510
  Transmission Date: 20061013
  Serious: Yes (Death, Hospitalization)
  Sender: FDA-Public Use
  Company Number: GB-AVENTIS-200612686EU

PATIENT
  Sex: Male

DRUGS (1)
  1. CLEXANE [Suspect]
     Indication: DRUG USE FOR UNKNOWN INDICATION

REACTIONS (5)
  - CONTUSION [None]
  - EYE HAEMORRHAGE [None]
  - HAEMORRHAGIC STROKE [None]
  - PNEUMONIA [None]
  - RESPIRATORY FAILURE [None]
